FAERS Safety Report 13378932 (Version 1)
Quarter: 2017Q1

REPORT INFORMATION
  Report Type: Spontaneous
  Country: US (occurrence: US)
  Receive Date: 20170328
  Receipt Date: 20170328
  Transmission Date: 20170429
  Serious: No
  Sender: FDA-Public Use
  Company Number: US-ROCHE-GNE303833

PATIENT
  Sex: Female

DRUGS (3)
  1. CORTICOSTEROID (UNK INGREDIENTS) [Concomitant]
     Indication: ASTHMA
  2. XOLAIR [Suspect]
     Active Substance: OMALIZUMAB
     Indication: ASTHMA
     Dosage: UNK
     Route: 058
     Dates: start: 200911
  3. BRONCHODILATOR (UNK INGREDIENTS) [Concomitant]
     Indication: ASTHMA

REACTIONS (1)
  - Pain in extremity [Unknown]
